FAERS Safety Report 10744244 (Version 2)
Quarter: 2015Q1

REPORT INFORMATION
  Report Type: Spontaneous
  Country: US (occurrence: None)
  Receive Date: 20150126
  Receipt Date: 20150203
  Transmission Date: 20150721
  Serious: Yes (Other)
  Sender: FDA-Public Use
  Company Number: 20150015

PATIENT
  Age: 4 Year
  Sex: Female

DRUGS (10)
  1. SUPLENA [Concomitant]
  2. FUROSEMIDE. [Concomitant]
     Active Substance: FUROSEMIDE
  3. HYPERTONIC SALINE [Concomitant]
  4. PREDNISOLONE. [Concomitant]
     Active Substance: PREDNISOLONE
  5. CF MULTIVITMINS [Concomitant]
  6. BECLOMETHASONE [Concomitant]
     Active Substance: BECLOMETHASONE
  7. PANCREATIC ENZYME [Concomitant]
  8. SODIUM CHLORIDE INJECTIONS, USP (2802-25) 0.9#% [Suspect]
     Active Substance: SODIUM CHLORIDE
     Indication: FLUID REPLACEMENT
     Route: 042
  9. IPRATROPIUM BROMIDE. [Concomitant]
     Active Substance: IPRATROPIUM BROMIDE
  10. DORNASE ALFA [Concomitant]
     Active Substance: DORNASE ALFA

REACTIONS (1)
  - Polyuria [None]
